FAERS Safety Report 24701181 (Version 4)
Quarter: 2025Q2

REPORT INFORMATION
  Report Type: Spontaneous
  Country: GB (occurrence: GB)
  Receive Date: 20241205
  Receipt Date: 20250414
  Transmission Date: 20250717
  Serious: Yes (Death, Other)
  Sender: MYLAN
  Company Number: GB-MYLANLABS-2024M1056620

PATIENT
  Age: 64 Year
  Sex: Male

DRUGS (7)
  1. CLOZARIL [Suspect]
     Active Substance: CLOZAPINE
     Indication: Schizophrenia
     Dosage: 600 MILLIGRAM, QD
     Dates: start: 20010701
  2. CLOZARIL [Suspect]
     Active Substance: CLOZAPINE
     Dosage: 300 MILLIGRAM, BID (300MG BD)
  3. CLOZARIL [Suspect]
     Active Substance: CLOZAPINE
     Dosage: 250 MILLIGRAM, AM (250MG MORNING)
  4. CLOZARIL [Suspect]
     Active Substance: CLOZAPINE
     Dosage: 200 MILLIGRAM, AM (200MG MORNING)
  5. SULPIRIDE [Concomitant]
     Active Substance: SULPIRIDE
     Dosage: UNK UNK, BID (100MG MORNING AND 200MG NOCTE)
  6. DIAZEPAM [Concomitant]
     Active Substance: DIAZEPAM
     Dosage: 5 MILLIGRAM, PM (5MG NOCTE)
  7. PROCYCLIDINE [Concomitant]
     Active Substance: PROCYCLIDINE
     Dosage: 5 MILLIGRAM, BID (5MG TWICE DAILY)

REACTIONS (5)
  - Death [Fatal]
  - Squamous cell carcinoma of lung [Unknown]
  - Adrenal gland cancer [Unknown]
  - Transitional cell carcinoma [Unknown]
  - Anaemia [Unknown]

NARRATIVE: CASE EVENT DATE: 20240312
